FAERS Safety Report 8480165-5 (Version None)
Quarter: 2012Q2

REPORT INFORMATION
  Report Type: 
  Country: None (occurrence: None)
  Receive Date: 20120629
  Receipt Date: 20120626
  Transmission Date: 20120825
  Serious: Yes (Disabling)
  Sender: FDA-Public Use
  Company Number: FR-MERCK-1204FRA00115

PATIENT
  Age: 79 Year
  Sex: Male
  Weight: 83 kg

DRUGS (9)
  1. PAROXETINE HYDROCHLORIDE [Concomitant]
     Indication: DEPRESSION
     Route: 065
     Dates: start: 20070529, end: 20110317
  2. ASPIRIN LYSINE [Concomitant]
     Indication: PLATELET AGGREGATION INHIBITION
     Route: 065
     Dates: start: 20080411, end: 20110317
  3. ATORVASTATIN CALCIUM [Concomitant]
     Indication: DYSLIPIDAEMIA
     Route: 065
     Dates: start: 20080411, end: 20110317
  4. JANUVIA [Suspect]
     Indication: TYPE 2 DIABETES MELLITUS
     Route: 048
     Dates: start: 20100204, end: 20110317
  5. INSULIN, ISOPHANE [Concomitant]
     Route: 065
  6. BISOPROLOL [Concomitant]
     Indication: HYPERTENSION
     Route: 065
     Dates: start: 20070316, end: 20110317
  7. METFORMIN PAMOATE [Concomitant]
     Route: 048
  8. MIANSERIN HYDROCHLORIDE [Concomitant]
     Indication: DEPRESSION
     Route: 065
     Dates: start: 20070529, end: 20110317
  9. IRBESARTAN [Concomitant]
     Indication: HYPERTENSION
     Route: 065
     Dates: start: 20070316, end: 20110317

REACTIONS (2)
  - VASCULAR DEMENTIA [None]
  - DEMENTIA [None]
